FAERS Safety Report 16136448 (Version 1)
Quarter: 2019Q1

REPORT INFORMATION
  Report Type: Spontaneous
  Country: US (occurrence: US)
  Receive Date: 20190329
  Receipt Date: 20190329
  Transmission Date: 20190418
  Serious: No
  Sender: FDA-Public Use
  Company Number: US-009507513-1903USA012653

PATIENT
  Age: 96 Year
  Sex: Female

DRUGS (1)
  1. BELSOMRA [Suspect]
     Active Substance: SUVOREXANT
     Indication: INSOMNIA
     Dosage: UNK
     Route: 048
     Dates: start: 20190320, end: 20190327

REACTIONS (3)
  - Drug ineffective [Unknown]
  - Abnormal dreams [Unknown]
  - Poor quality sleep [Unknown]

NARRATIVE: CASE EVENT DATE: 201903
